FAERS Safety Report 4759212-X (Version None)
Quarter: 2005Q3

REPORT INFORMATION
  Report Type: 
  Country: None (occurrence: None)
  Receive Date: 20050831
  Receipt Date: 20050822
  Transmission Date: 20060218
  Serious: Yes (Hospitalization, Other)
  Sender: FDA-Public Use
  Company Number: 2005-08-0797

PATIENT
  Age: 82 Year
  Sex: Female

DRUGS (5)
  1. CELESTAMINE TAB [Suspect]
     Indication: DERMATITIS ALLERGIC
     Dosage: 2 TABS ORAL
     Route: 048
     Dates: start: 20050708, end: 20050722
  2. ATARAX [Concomitant]
  3. MAGNESIUM OXIDE TABLETS [Concomitant]
  4. POLARAMINE [Concomitant]
  5. PROTON PUMP INHIBITOR (NOS) [Concomitant]

REACTIONS (3)
  - GASTRIC ULCER HAEMORRHAGE [None]
  - HAEMATEMESIS [None]
  - MELAENA [None]
